FAERS Safety Report 10025978 (Version 1)
Quarter: 2014Q1

REPORT INFORMATION
  Report Type: Spontaneous
  Country: US (occurrence: US)
  Receive Date: 20140320
  Receipt Date: 20140320
  Transmission Date: 20141002
  Serious: No
  Sender: FDA-Public Use
  Company Number: US-009507513-1403USA005107

PATIENT
  Sex: Male

DRUGS (3)
  1. PEGINTRON [Suspect]
     Indication: HEPATITIS C
     Dosage: REDIPEN, DOSE: 0.5 ML Q7DAYS
     Route: 058
     Dates: start: 20140228
  2. REBETOL [Suspect]
     Indication: HEPATITIS C
     Dosage: 600 MG, TWICE A DAY
     Route: 048
     Dates: start: 20140228
  3. SOVALDI [Concomitant]
     Dosage: 600 MG, BID
     Route: 048

REACTIONS (1)
  - Dysgeusia [Unknown]
